FAERS Safety Report 18446047 (Version 1)
Quarter: 2020Q4

REPORT INFORMATION
  Report Type: Report from Study
  Country: US (occurrence: US)
  Receive Date: 20201030
  Receipt Date: 20201030
  Transmission Date: 20210114
  Serious: Yes (Other)
  Sender: FDA-Public Use
  Company Number: US-JNJFOC-20201032272

PATIENT
  Age: 65 Year
  Sex: Female

DRUGS (2)
  1. SPRAVATO [Suspect]
     Active Substance: ESKETAMINE
     Indication: DEPRESSION
     Dosage: 56 MG, TOTAL 7 DOSES
     Dates: start: 20190508, end: 20200311
  2. SPRAVATO [Suspect]
     Active Substance: ESKETAMINE
     Dosage: 84 MG, 29 TOTAL DOSES
     Dates: start: 20200316, end: 20201007

REACTIONS (2)
  - Product dose omission issue [Unknown]
  - Suicidal ideation [Unknown]
